FAERS Safety Report 6969385-6 (Version None)
Quarter: 2010Q3

REPORT INFORMATION
  Report Type: 
  Country: None (occurrence: None)
  Receive Date: 20100902
  Receipt Date: 20100825
  Transmission Date: 20110219
  Serious: Yes (Hospitalization)
  Sender: FDA-Public Use
  Company Number: GP-10-08-0024

PATIENT
  Age: 30 Year
  Sex: Female
  Weight: 81.4 kg

DRUGS (2)
  1. TOPIRAMATE [Suspect]
     Indication: PARTIAL SEIZURES
     Dosage: 400 MG, 2 IN 1 D, PO
     Route: 048
     Dates: start: 20100715
  2. TEGRETOL-XR [Concomitant]

REACTIONS (3)
  - ASTHMA [None]
  - COUGH [None]
  - FRONTAL LOBE EPILEPSY [None]
